FAERS Safety Report 5382462-9 (Version None)
Quarter: 2007Q3

REPORT INFORMATION
  Report Type: 
  Country: None (occurrence: None)
  Receive Date: 20070705
  Receipt Date: 20060808
  Transmission Date: 20080115
  Serious: Yes (Hospitalization)
  Sender: FDA-Public Use
  Company Number: WAES 0608USA01904

PATIENT
  Age: 73 Year
  Sex: Female

DRUGS (10)
  1. HYZAAR [Suspect]
     Dosage: 100/25 MG/PO
     Route: 048
  2. COREG [Concomitant]
  3. DYNACIRC [Concomitant]
  4. DYNACIRC [Concomitant]
  5. FOSAMAX [Concomitant]
  6. LANTUS [Concomitant]
  7. LIPITOR [Concomitant]
  8. PREVACID [Concomitant]
  9. THERAPY UNSPECIFIED [Concomitant]
  10. GLYBURIDE [Concomitant]

REACTIONS (1)
  - ASTHENIA [None]
